FAERS Safety Report 21658661 (Version 3)
Quarter: 2023Q1

REPORT INFORMATION
  Report Type: Spontaneous
  Country: US (occurrence: US)
  Receive Date: 20221129
  Receipt Date: 20230306
  Transmission Date: 20230418
  Serious: No
  Sender: FDA-Public Use
  Company Number: US-BRISTOL-MYERS SQUIBB COMPANY-2022-145033

PATIENT
  Age: 85 Year
  Sex: Male
  Weight: 82.1 kg

DRUGS (3)
  1. REVLIMID [Suspect]
     Active Substance: LENALIDOMIDE
     Indication: Diffuse large B-cell lymphoma
     Dosage: FREQUENCY- 21 OF 28DAY
     Route: 048
     Dates: start: 20221119, end: 20221120
  2. REVLIMID [Suspect]
     Active Substance: LENALIDOMIDE
     Dosage: FREQUENCY- 21 OF 28DAY
     Route: 048
  3. MONJUVI [Concomitant]
     Active Substance: TAFASITAMAB-CXIX
     Indication: Product used for unknown indication
     Dosage: 5DAYS PER MONTH?1CYCLE 12MG/KG
     Route: 042
     Dates: start: 20221111

REACTIONS (2)
  - Rash [Recovered/Resolved]
  - Off label use [Unknown]
